FAERS Safety Report 16385343 (Version 1)
Quarter: 2019Q2

REPORT INFORMATION
  Report Type: Spontaneous
  Country: JP (occurrence: JP)
  Receive Date: 20190603
  Receipt Date: 20190603
  Transmission Date: 20190711
  Serious: Yes (Death, Hospitalization)
  Sender: FDA-Public Use
  Company Number: JP-HTU-2019JP019010

PATIENT
  Age: 66 Year
  Sex: Male
  Weight: 52 kg

DRUGS (8)
  1. ALOXI [Suspect]
     Active Substance: PALONOSETRON HYDROCHLORIDE
     Indication: PROPHYLAXIS OF NAUSEA AND VOMITING
     Dosage: 0.75 MILLIGRAM, SINGLE
     Route: 042
     Dates: start: 20190318, end: 20190318
  2. CARBOPLATIN. [Suspect]
     Active Substance: CARBOPLATIN
     Indication: NON-SMALL CELL LUNG CANCER
     Dosage: 420 MILLIGRAM, SINGLE
     Route: 042
     Dates: start: 20190318, end: 20190318
  3. EMEND [Suspect]
     Active Substance: APREPITANT
     Dosage: 125 MILLIGRAM, QD
     Route: 048
     Dates: start: 20190318, end: 20190318
  4. FUROSEMIDE. [Suspect]
     Active Substance: FUROSEMIDE
     Indication: DIURETIC THERAPY
     Dosage: 10 MILLIGRAM, SINGLE
     Route: 042
     Dates: start: 20190318, end: 20190318
  5. ABRAXANE [Suspect]
     Active Substance: PACLITAXEL
     Indication: PROPHYLAXIS OF NAUSEA AND VOMITING
     Dosage: 150 MILLIGRAM SINGLE
     Route: 042
     Dates: start: 20190318, end: 20190318
  6. EMEND [Suspect]
     Active Substance: APREPITANT
     Indication: PROPHYLAXIS OF NAUSEA AND VOMITING
     Dosage: 80 MILLIGRAM
     Route: 048
     Dates: start: 20190319, end: 20190320
  7. KEYTRUDA [Suspect]
     Active Substance: PEMBROLIZUMAB
     Indication: NON-SMALL CELL LUNG CANCER METASTATIC
     Dosage: 200 MILLIGRAM, SINGLE
     Route: 042
     Dates: start: 20190318, end: 20190318
  8. DEXART [Suspect]
     Active Substance: DEXAMETHASONE SODIUM PHOSPHATE
     Indication: PROPHYLAXIS OF NAUSEA AND VOMITING
     Dosage: 6.6 MILLIGRAM, SINGLE
     Route: 042
     Dates: start: 20190318, end: 20190318

REACTIONS (2)
  - Nephritis [Fatal]
  - Pneumonitis [Fatal]

NARRATIVE: CASE EVENT DATE: 20190325
